FAERS Safety Report 4495229-0 (Version None)
Quarter: 2004Q4

REPORT INFORMATION
  Report Type: 
  Country: None (occurrence: None)
  Receive Date: 20041108
  Receipt Date: 20040719
  Transmission Date: 20050328
  Serious: No
  Sender: FDA-Public Use
  Company Number: US-GLAXOSMITHKLINE-A0518830A

PATIENT
  Age: 54 Year
  Sex: Female

DRUGS (3)
  1. AVANDAMET [Suspect]
     Dosage: 1TAB TWICE PER DAY
     Route: 048
     Dates: start: 20040716
  2. VITAMIN E [Concomitant]
  3. MULTI-VITAMIN [Concomitant]

REACTIONS (1)
  - FLATULENCE [None]
